FAERS Safety Report 11666875 (Version 1)
Quarter: 2015Q4

REPORT INFORMATION
  Report Type: Spontaneous
  Country: US (occurrence: US)
  Receive Date: 20151027
  Receipt Date: 20151027
  Transmission Date: 20160304
  Serious: No
  Sender: FDA-Public Use
  Company Number: US-ELI_LILLY_AND_COMPANY-US201002003169

PATIENT
  Age: 61 Year
  Sex: Female

DRUGS (1)
  1. FORTEO [Suspect]
     Active Substance: TERIPARATIDE
     Indication: OSTEOPOROSIS
     Dosage: 20 UG, DAILY (1/D)
     Route: 058
     Dates: start: 200912

REACTIONS (13)
  - Muscle spasms [Unknown]
  - Blood pressure decreased [Unknown]
  - Fluid retention [Unknown]
  - Dizziness [Unknown]
  - Musculoskeletal discomfort [Unknown]
  - Arthralgia [Unknown]
  - Pain [Unknown]
  - Hypertension [Unknown]
  - Visual impairment [Unknown]
  - Feeling abnormal [Unknown]
  - Nausea [Unknown]
  - Heart rate increased [Recovered/Resolved]
  - Mobility decreased [Unknown]
